FAERS Safety Report 21473742 (Version 2)
Quarter: 2022Q4

REPORT INFORMATION
  Report Type: Spontaneous
  Country: JP (occurrence: JP)
  Receive Date: 20221018
  Receipt Date: 20221123
  Transmission Date: 20230113
  Serious: Yes (Death, Hospitalization)
  Sender: FDA-Public Use
  Company Number: JP-PFIZER INC-PV202200083969

PATIENT
  Age: 66 Year
  Sex: Male
  Weight: 51.6 kg

DRUGS (4)
  1. BEVACIZUMAB [Suspect]
     Active Substance: BEVACIZUMAB
     Indication: Rectal cancer
     Dosage: UNK
     Dates: start: 20220531
  2. FERROUS SULFATE [Concomitant]
     Active Substance: FERROUS SULFATE
     Indication: Iron deficiency anaemia
     Dosage: 105 MG, 2X/DAY
     Route: 048
     Dates: start: 20211214
  3. CAPECITABINE [Concomitant]
     Active Substance: CAPECITABINE
     Indication: Rectal cancer
     Dosage: 1500 MG, 2X/DAY
     Route: 048
     Dates: start: 20220329
  4. APREPITANT [Concomitant]
     Active Substance: APREPITANT
     Indication: Rectal cancer
     Dosage: 80 MG, DAILY
     Route: 048
     Dates: start: 20220329

REACTIONS (4)
  - Pulmonary fistula [Fatal]
  - Shock haemorrhagic [Fatal]
  - Multiple organ dysfunction syndrome [Fatal]
  - Subcutaneous emphysema [Recovered/Resolved]

NARRATIVE: CASE EVENT DATE: 20220828
